FAERS Safety Report 18303145 (Version 2)
Quarter: 2020Q3

REPORT INFORMATION
  Report Type: Report from Study
  Country: GB (occurrence: GB)
  Receive Date: 20200923
  Receipt Date: 20200929
  Transmission Date: 20201103
  Serious: Yes (Other)
  Sender: FDA-Public Use
  Company Number: NVSC2020GB256483

PATIENT
  Sex: Female

DRUGS (1)
  1. HYRIMOZ [Suspect]
     Active Substance: ADALIMUMAB-ADAZ
     Indication: CROHN^S DISEASE
     Dosage: 40 MG (40MG/0.8ML) EOW
     Route: 065
     Dates: start: 20191129

REACTIONS (4)
  - Dementia Alzheimer^s type [Unknown]
  - Confusional state [Unknown]
  - Abdominal discomfort [Unknown]
  - Product dose omission issue [Unknown]
